FAERS Safety Report 9603095 (Version 3)
Quarter: 2014Q1

REPORT INFORMATION
  Report Type: Spontaneous
  Country: FR (occurrence: FR)
  Receive Date: 20131007
  Receipt Date: 20140317
  Transmission Date: 20141002
  Serious: Yes (Congenital Anomaly)
  Sender: FDA-Public Use
  Company Number: FR-GLAXOSMITHKLINE-B0925472A

PATIENT
  Age: 0 Year
  Sex: Female

DRUGS (4)
  1. LAMICTAL [Suspect]
     Indication: EPILEPSY
     Route: 064
     Dates: start: 20130211
  2. DEPAKINE CHRONO [Suspect]
     Indication: EPILEPSY
     Dosage: 750MG PER DAY
     Route: 064
     Dates: start: 201303, end: 201305
  3. INSULIN [Concomitant]
     Indication: GESTATIONAL DIABETES
     Route: 064
     Dates: start: 2013
  4. SPECIAFOLDINE [Concomitant]
     Indication: VITAMIN SUPPLEMENTATION
     Dosage: 5MG UNKNOWN
     Route: 064
     Dates: start: 201305, end: 201312

REACTIONS (4)
  - Congenital cystic kidney disease [Unknown]
  - Pelvic kidney [Unknown]
  - Renal dysplasia [Unknown]
  - Foetal exposure during pregnancy [Unknown]
